FAERS Safety Report 5025448-6 (Version None)
Quarter: 2006Q2

REPORT INFORMATION
  Report Type: 
  Country: None (occurrence: None)
  Receive Date: 20060608
  Receipt Date: 20060531
  Transmission Date: 20061013
  Serious: Yes (Other)
  Sender: FDA-Public Use
  Company Number: 2006033354

PATIENT
  Age: 50 Year
  Sex: Male
  Weight: 74.8435 kg

DRUGS (6)
  1. VIAGRA [Suspect]
     Indication: ERECTILE DYSFUNCTION
     Dosage: (25 MG)
     Dates: start: 20020101, end: 20030101
  2. LOTREL [Concomitant]
  3. CLONIDINE [Concomitant]
  4. HYDROCHLOROTHIAZIDE [Concomitant]
  5. PERCOCET [Concomitant]
  6. ANALGESICS (ANALGESICS) [Concomitant]

REACTIONS (10)
  - CATARACT [None]
  - COLONIC POLYP [None]
  - CYANOPSIA [None]
  - DRUG INEFFECTIVE [None]
  - EAR INJURY [None]
  - HEAD INJURY [None]
  - HYPOACUSIS [None]
  - SENSORY LOSS [None]
  - TINNITUS [None]
  - VICTIM OF CRIME [None]
